FAERS Safety Report 10886279 (Version 1)
Quarter: 2015Q1

REPORT INFORMATION
  Report Type: Spontaneous
  Country: US (occurrence: None)
  Receive Date: 20150227
  Receipt Date: 20150227
  Transmission Date: 20150721
  Serious: Yes (Hospitalization, Disabling)
  Sender: FDA-Public Use
  Company Number: COL_18895_2015

PATIENT
  Sex: Female

DRUGS (3)
  1. COLGATE TOTAL ADVANCED PRO-SHIELD PEPPERMINT BLAST [Suspect]
     Active Substance: CETYLPYRIDINIUM CHLORIDE
     Indication: PRODUCT USED FOR UNKNOWN INDICATION
     Route: 061
  2. COLGATE TOTAL ADVANCED CLEAN [Suspect]
     Active Substance: SODIUM FLUORIDE\TRICLOSAN
     Indication: PRODUCT USED FOR UNKNOWN INDICATION
     Route: 061
  3. COLGATE TOTAL FRESHMINT [Suspect]
     Active Substance: CETYLPYRIDINIUM CHLORIDE
     Indication: PRODUCT USED FOR UNKNOWN INDICATION
     Route: 061

REACTIONS (6)
  - Hypersensitivity [None]
  - Blister [None]
  - Infection [None]
  - Wound [None]
  - Sepsis [None]
  - Accidental exposure to product [None]
